FAERS Safety Report 9122961 (Version 1)
Quarter: 2013Q1

REPORT INFORMATION
  Report Type: Spontaneous
  Country: GB (occurrence: GB)
  Receive Date: 20130227
  Receipt Date: 20130227
  Transmission Date: 20140127
  Serious: Yes (Other)
  Sender: FDA-Public Use
  Company Number: GB-ELI_LILLY_AND_COMPANY-GB201302006109

PATIENT
  Age: 55 Year
  Sex: Male
  Weight: 60 kg

DRUGS (4)
  1. CIALIS [Suspect]
     Indication: ERECTILE DYSFUNCTION
     Dosage: 40 MG, UNK
     Route: 048
     Dates: start: 2010
  2. CITALOPRAM [Concomitant]
  3. OMEPRAZOLE [Concomitant]
  4. SALBUTAMOL [Concomitant]

REACTIONS (3)
  - Methaemoglobinaemia [Recovering/Resolving]
  - Syncope [Unknown]
  - Overdose [Unknown]
